FAERS Safety Report 24152903 (Version 1)
Quarter: 2024Q3

REPORT INFORMATION
  Report Type: Spontaneous
  Country: US (occurrence: None)
  Receive Date: 20240729
  Receipt Date: 20240729
  Transmission Date: 20241016
  Serious: Yes (Other)
  Sender: Public
  Company Number: None

PATIENT
  Age: 22 Year
  Sex: Female
  Weight: 53.1 kg

DRUGS (1)
  1. CIPROFLOXACIN [Suspect]
     Active Substance: CIPROFLOXACIN
     Indication: Urinary tract infection
     Dates: start: 20240724, end: 20240725

REACTIONS (8)
  - Paraesthesia [None]
  - Sleep disorder [None]
  - Pain in extremity [None]
  - Hypoaesthesia [None]
  - Paraesthesia [None]
  - Tendon pain [None]
  - Arthralgia [None]
  - Hypoaesthesia [None]

NARRATIVE: CASE EVENT DATE: 20240724
